FAERS Safety Report 9327485 (Version 1)
Quarter: 2013Q2

REPORT INFORMATION
  Report Type: Spontaneous
  Country: US (occurrence: US)
  Receive Date: 20130604
  Receipt Date: 20130604
  Transmission Date: 20140414
  Serious: No
  Sender: FDA-Public Use
  Company Number: US-PFIZER INC-2013167345

PATIENT
  Age: 67 Year
  Sex: Female
  Weight: 70.75 kg

DRUGS (7)
  1. CELEBREX [Suspect]
     Indication: ARTHRITIS
     Dosage: 200MG, DAILY
     Dates: start: 2012
  2. MIDODRINE [Concomitant]
     Indication: ORTHOSTATIC HYPOTENSION
     Dosage: 10 MG, 3X/DAY
  3. COREG [Concomitant]
     Indication: CARDIAC DISORDER
     Dosage: 12 MG, 2X/DAY
  4. LYRICA [Concomitant]
     Indication: FIBROMYALGIA
     Dosage: 100 MG, 3X/DAY
  5. OXYCODONE [Concomitant]
     Indication: BACK PAIN
     Dosage: 10 MG, AS NEEDED
  6. ELAVIL [Concomitant]
     Dosage: 25MG DAILY AT BED TIME
  7. RESTORIL [Concomitant]
     Indication: SLEEP DISORDER
     Dosage: 30MG, DAILY AT BED TIME

REACTIONS (2)
  - Fluid retention [Unknown]
  - Limb discomfort [Unknown]
